FAERS Safety Report 6369339-7 (Version None)
Quarter: 2009Q3

REPORT INFORMATION
  Report Type: 
  Country: None (occurrence: None)
  Receive Date: 20090826
  Receipt Date: 20090812
  Transmission Date: 20100115
  Serious: Yes (Hospitalization)
  Sender: FDA-Public Use
  Company Number: THYM-1001153

PATIENT
  Age: 9 Year
  Sex: Male
  Weight: 38 kg

DRUGS (4)
  1. THYMOGLOBULIN [Suspect]
     Indication: APLASTIC ANAEMIA
     Dosage: 3.75 MG/KG, QD, INTRAVENOUS
     Route: 042
     Dates: start: 20090728, end: 20090801
  2. CYCLOSPORINE [Concomitant]
  3. METHYLPREDNISOLONE SODIUM SUCCINATE (METHYLPRDNISOLONE SODIUM SUCCINAT [Concomitant]
  4. ACETAMINOPHEN [Concomitant]

REACTIONS (3)
  - DIARRHOEA [None]
  - PYREXIA [None]
  - TINNITUS [None]
